FAERS Safety Report 5449392-5 (Version None)
Quarter: 2007Q3

REPORT INFORMATION
  Report Type: 
  Country: None (occurrence: None)
  Receive Date: 20070911
  Receipt Date: 20070831
  Transmission Date: 20080115
  Serious: Yes (Disabling)
  Sender: FDA-Public Use
  Company Number: GB-PFIZER INC-2007073174

PATIENT
  Age: 62 Year
  Sex: Female
  Weight: 77 kg

DRUGS (10)
  1. AMLODIPINE [Suspect]
     Indication: HYPERTENSION
     Route: 048
     Dates: start: 20070518, end: 20070620
  2. BETAHISTINE DIHYDROCHLORIDE [Concomitant]
     Route: 048
  3. BISOPROLOL FUMARATE [Concomitant]
     Route: 048
  4. CIPROFIBRATE [Concomitant]
     Route: 048
  5. ESTRADIOL [Concomitant]
     Route: 062
  6. LOSARTAN POTASSIUM [Concomitant]
     Route: 048
  7. NAPROXEN [Concomitant]
     Route: 048
  8. PANTOPRAZOLE SODIUM [Concomitant]
     Route: 048
  9. CROMOLYN SODIUM [Concomitant]
     Route: 047
  10. TRIMETHOPRIM [Concomitant]
     Route: 048

REACTIONS (1)
  - VISION BLURRED [None]
